FAERS Safety Report 5958090-0 (Version None)
Quarter: 2008Q4

REPORT INFORMATION
  Report Type: 
  Country: None (occurrence: None)
  Receive Date: 20081119
  Receipt Date: 20081113
  Transmission Date: 20090506
  Serious: Yes (Other)
  Sender: FDA-Public Use
  Company Number: B0546096A

PATIENT
  Age: 89 Year
  Sex: Female

DRUGS (1)
  1. PAROXETINE HCL [Suspect]
     Indication: DEMENTIA
     Route: 048

REACTIONS (2)
  - ACTIVATION SYNDROME [None]
  - MANIA [None]
